FAERS Safety Report 8445272-1 (Version None)
Quarter: 2012Q2

REPORT INFORMATION
  Report Type: 
  Country: None (occurrence: None)
  Receive Date: 20120618
  Receipt Date: 20120611
  Transmission Date: 20120825
  Serious: Yes (Other)
  Sender: FDA-Public Use
  Company Number: US-JNJFOC-20120601135

PATIENT

DRUGS (2)
  1. RADIATION THERAPY NOS [Suspect]
     Indication: NEOPLASM MALIGNANT
     Route: 065
  2. DOXORUBICIN HCL [Suspect]
     Indication: NEOPLASM MALIGNANT
     Dosage: CYCLE 1
     Route: 042
     Dates: start: 20120401

REACTIONS (2)
  - CARBOHYDRATE ANTIGEN 125 INCREASED [None]
  - ASCITES [None]
